FAERS Safety Report 5497021-7 (Version None)
Quarter: 2007Q4

REPORT INFORMATION
  Report Type: 
  Country: None (occurrence: None)
  Receive Date: 20071025
  Receipt Date: 20071024
  Transmission Date: 20080405
  Serious: Yes (Hospitalization)
  Sender: FDA-Public Use
  Company Number: HQWYE584912JUN07

PATIENT
  Sex: Female

DRUGS (7)
  1. INDERAL LA [Suspect]
     Indication: HYPERTENSION
     Route: 048
     Dates: start: 20061116, end: 20070425
  2. LIPITOR [Concomitant]
     Indication: HYPERLIPIDAEMIA
     Route: 048
     Dates: start: 20060911, end: 20070425
  3. CANDESARTAN CILEXETIL [Concomitant]
     Indication: HYPERTENSION
     Route: 048
     Dates: start: 20060619, end: 20070425
  4. ADALAT [Suspect]
     Indication: HYPERTENSION
     Route: 048
     Dates: start: 20061013, end: 20070425
  5. URINORM [Suspect]
     Indication: HYPERURICAEMIA
     Route: 048
     Dates: start: 20060821, end: 20061117
  6. URINORM [Suspect]
     Route: 048
     Dates: start: 20061116, end: 20061221
  7. URINORM [Suspect]
     Route: 048
     Dates: start: 20061222, end: 20070528

REACTIONS (1)
  - HEPATIC FUNCTION ABNORMAL [None]
